FAERS Safety Report 9333024 (Version 1)
Quarter: 2013Q2

REPORT INFORMATION
  Report Type: Spontaneous
  Country: US (occurrence: US)
  Receive Date: 20130606
  Receipt Date: 20130606
  Transmission Date: 20140414
  Serious: No
  Sender: FDA-Public Use
  Company Number: US-PFIZER INC-2013171181

PATIENT
  Age: 38 Year
  Sex: Female
  Weight: 58.96 kg

DRUGS (5)
  1. PRISTIQ [Suspect]
     Indication: MAJOR DEPRESSION
     Dosage: 100 MG, DAILY
     Dates: end: 2013
  2. PRISTIQ [Suspect]
     Indication: ANXIETY
  3. ADDERALL [Concomitant]
     Dosage: 20 MG, UNK
  4. XANAX [Concomitant]
     Dosage: 1 MG, UNK
  5. AMBIEN [Concomitant]
     Dosage: 10 MG, UNK

REACTIONS (6)
  - Depression [Unknown]
  - Bedridden [Unknown]
  - Hostility [Unknown]
  - Crying [Unknown]
  - Aggression [Unknown]
  - Off label use [Unknown]
